FAERS Safety Report 19689786 (Version 1)
Quarter: 2021Q3

REPORT INFORMATION
  Report Type: Spontaneous
  Country: ES (occurrence: ES)
  Receive Date: 20210812
  Receipt Date: 20210812
  Transmission Date: 20211014
  Serious: Yes (Hospitalization)
  Sender: FDA-Public Use
  Company Number: ES-ACCORD-235004

PATIENT
  Age: 56 Year
  Sex: Male

DRUGS (3)
  1. SPIKEVAX [Suspect]
     Active Substance: CX-024414
     Indication: COVID-19 IMMUNISATION
     Dosage: 1 DOSE ADMINISTERED
     Route: 030
     Dates: start: 20210522, end: 20210522
  2. ARIPIPRAZOLE. [Suspect]
     Active Substance: ARIPIPRAZOLE
     Indication: DEPRESSION
     Dosage: 1?0?0
     Route: 048
     Dates: start: 20210526, end: 20210615
  3. DESVENLAFAXIN/DESVENLAFAXINSUCCINATE [Suspect]
     Active Substance: DESVENLAFAXINE SUCCINATE
     Indication: DEPRESSION
     Dosage: 1?0?0
     Route: 048
     Dates: start: 20210318, end: 20210615

REACTIONS (1)
  - Reversible cerebral vasoconstriction syndrome [Recovered/Resolved with Sequelae]

NARRATIVE: CASE EVENT DATE: 20210607
